FAERS Safety Report 18344267 (Version 1)
Quarter: 2020Q4

REPORT INFORMATION
  Report Type: Spontaneous
  Country: IT (occurrence: IT)
  Receive Date: 20201005
  Receipt Date: 20201005
  Transmission Date: 20210114
  Serious: Yes (Hospitalization)
  Sender: FDA-Public Use
  Company Number: IT-TAKEDA-2020TUS041318

PATIENT
  Age: 50 Year
  Sex: Female

DRUGS (4)
  1. PANTOPRAZOLE [Concomitant]
     Active Substance: PANTOPRAZOLE
     Dosage: 40 MILLIGRAM
     Route: 048
  2. MESALAZINE [Concomitant]
     Active Substance: MESALAMINE
     Dosage: 800 MILLIGRAM
     Route: 048
  3. PREDNISONE. [Concomitant]
     Active Substance: PREDNISONE
     Dosage: 25 MILLIGRAM
     Route: 048
  4. ENTYVIO [Suspect]
     Active Substance: VEDOLIZUMAB
     Indication: COLITIS ULCERATIVE
     Dosage: 300 MILLIGRAM
     Route: 042
     Dates: start: 20200710, end: 20200825

REACTIONS (2)
  - Endophthalmitis [Recovering/Resolving]
  - Vitritis [Recovering/Resolving]

NARRATIVE: CASE EVENT DATE: 20200801
